FAERS Safety Report 5509633-2 (Version None)
Quarter: 2007Q4

REPORT INFORMATION
  Report Type: 
  Country: None (occurrence: None)
  Receive Date: 20071108
  Receipt Date: 20071026
  Transmission Date: 20080405
  Serious: Yes (Other)
  Sender: FDA-Public Use
  Company Number: PHFR2007GB03240

PATIENT

DRUGS (1)
  1. DEFERASIROX [Suspect]

REACTIONS (1)
  - COMPLICATIONS OF BONE MARROW TRANSPLANT [None]
